FAERS Safety Report 15993174 (Version 1)
Quarter: 2019Q1

REPORT INFORMATION
  Report Type: Spontaneous
  Country: US (occurrence: US)
  Receive Date: 20190222
  Receipt Date: 20190222
  Transmission Date: 20190418
  Serious: No
  Sender: FDA-Public Use
  Company Number: US-LUPIN PHARMACEUTICALS INC.-2018-09107

PATIENT
  Sex: Male

DRUGS (1)
  1. CLOBETASOL PROPIONATE CREAM USP, 0.05 [Suspect]
     Active Substance: CLOBETASOL PROPIONATE
     Indication: ARTHROPOD BITE
     Dosage: UNK
     Route: 065

REACTIONS (2)
  - Skin discolouration [Unknown]
  - Dry skin [Unknown]
